FAERS Safety Report 21206361 (Version 1)
Quarter: 2022Q3

REPORT INFORMATION
  Report Type: Spontaneous
  Country: US (occurrence: None)
  Receive Date: 20220811
  Receipt Date: 20220811
  Transmission Date: 20221027
  Serious: No
  Sender: FDA-Public Use
  Company Number: None

PATIENT
  Age: 68 Year
  Sex: Male
  Weight: 69.75 kg

DRUGS (5)
  1. CLOPIDOGREL [Suspect]
     Active Substance: CLOPIDOGREL BISULFATE
     Indication: Thrombosis prophylaxis
     Dosage: OTHER QUANTITY : 1 CAPSULE(S);?FREQUENCY : DAILY;?
     Route: 048
  2. CLOPIDOGREL [Concomitant]
     Active Substance: CLOPIDOGREL BISULFATE
  3. COENZYME Q10 [Concomitant]
     Active Substance: DIETARY SUPPLEMENT\UBIDECARENONE
  4. FISH OIL [Concomitant]
     Active Substance: FISH OIL
  5. FLAXSEED [Concomitant]
     Active Substance: FLAX SEED

REACTIONS (9)
  - Product odour abnormal [None]
  - Product substitution issue [None]
  - Product quality issue [None]
  - Manufacturing materials issue [None]
  - Joint effusion [None]
  - Repetitive strain injury [None]
  - Tendon pain [None]
  - Peripheral swelling [None]
  - Gait inability [None]

NARRATIVE: CASE EVENT DATE: 20190801
